FAERS Safety Report 24646453 (Version 1)
Quarter: 2024Q4

REPORT INFORMATION
  Report Type: Spontaneous
  Country: GB (occurrence: GB)
  Receive Date: 20241121
  Receipt Date: 20241121
  Transmission Date: 20250115
  Serious: Yes (Death)
  Sender: MYLAN
  Company Number: GB-MYLANLABS-2024M1104623

PATIENT
  Sex: Male

DRUGS (1)
  1. CLOZARIL [Suspect]
     Active Substance: CLOZAPINE
     Indication: Schizophrenia
     Dosage: UNK
     Route: 048
     Dates: start: 20151202

REACTIONS (1)
  - Death [Fatal]

NARRATIVE: CASE EVENT DATE: 20241113
